FAERS Safety Report 19521515 (Version 3)
Quarter: 2021Q3

REPORT INFORMATION
  Report Type: Spontaneous
  Country: US (occurrence: US)
  Receive Date: 20210712
  Receipt Date: 20210826
  Transmission Date: 20211014
  Serious: Yes (Other)
  Sender: FDA-Public Use
  Company Number: US-ASTRAZENECA-2021A532231

PATIENT
  Sex: Female
  Weight: 103.1 kg

DRUGS (18)
  1. MAGNESIUM [Concomitant]
     Active Substance: MAGNESIUM
     Route: 048
  2. LANTUS SOLOSTAR U?100 [Concomitant]
     Route: 058
  3. GLIPIZIDE XL [Concomitant]
     Active Substance: GLIPIZIDE
     Route: 048
  4. VALSARTAN HCT [Concomitant]
     Active Substance: HYDROCHLOROTHIAZIDE\VALSARTAN
     Route: 048
  5. VITAMIN D3 [Concomitant]
     Active Substance: CHOLECALCIFEROL
     Route: 065
  6. AMLODIPINE [Concomitant]
     Active Substance: AMLODIPINE BESYLATE
     Route: 048
  7. ZINC. [Concomitant]
     Active Substance: ZINC
     Route: 048
  8. HYDRALAZINE [Concomitant]
     Active Substance: HYDRALAZINE HYDROCHLORIDE
     Indication: BLOOD PRESSURE ABNORMAL
     Route: 048
  9. AMBIEN [Concomitant]
     Active Substance: ZOLPIDEM TARTRATE
     Route: 048
  10. ATORVASTATIN [Concomitant]
     Active Substance: ATORVASTATIN
     Indication: BLOOD CHOLESTEROL ABNORMAL
     Route: 048
  11. BD MINI NDL [Concomitant]
     Dosage: FOUR TIMES DAILY
     Route: 065
  12. ASPIR?81 [Concomitant]
     Active Substance: ASPIRIN
     Dosage: ONE TABLET TWO TIMES EVERY WEEK
     Route: 048
  13. BYDUREON BCISE [Suspect]
     Active Substance: EXENATIDE
     Indication: DIABETES MELLITUS
     Route: 065
     Dates: start: 2021
  14. FENOFIBRATE. [Concomitant]
     Active Substance: FENOFIBRATE
     Route: 048
  15. BYSTOLIC [Concomitant]
     Active Substance: NEBIVOLOL HYDROCHLORIDE
     Route: 048
  16. JANUVIA [Concomitant]
     Active Substance: SITAGLIPTIN PHOSPHATE
     Route: 048
  17. ALLOPURINOL. [Concomitant]
     Active Substance: ALLOPURINOL
     Route: 048
  18. TRAMADOL. [Concomitant]
     Active Substance: TRAMADOL
     Route: 048

REACTIONS (15)
  - Insomnia [Unknown]
  - Device leakage [Unknown]
  - Wrong technique in device usage process [Unknown]
  - Hepatic enzyme increased [Unknown]
  - Needle issue [Unknown]
  - Incorrect dose administered by device [Unknown]
  - Diabetic neuropathy [Unknown]
  - Albuminuria [Unknown]
  - Injection site pain [Unknown]
  - Type V hyperlipidaemia [Unknown]
  - Gout [Unknown]
  - Blood glucose increased [Unknown]
  - Essential hypertension [Unknown]
  - Vertigo positional [Unknown]
  - Chronic kidney disease [Unknown]
